FAERS Safety Report 19716546 (Version 1)
Quarter: 2021Q3

REPORT INFORMATION
  Report Type: Spontaneous
  Country: US (occurrence: US)
  Receive Date: 20210818
  Receipt Date: 20210818
  Transmission Date: 20211014
  Serious: No
  Sender: FDA-Public Use
  Company Number: NVSC2021US186527

PATIENT
  Age: 78 Year

DRUGS (1)
  1. LAMISIL [Suspect]
     Active Substance: TERBINAFINE HYDROCHLORIDE
     Indication: TINEA CRURIS
     Dosage: UNK
     Route: 065
     Dates: start: 20210727

REACTIONS (2)
  - Pain [Unknown]
  - Hyperhidrosis [Unknown]
